FAERS Safety Report 5027121-7 (Version None)
Quarter: 2006Q2

REPORT INFORMATION
  Report Type: 
  Country: None (occurrence: None)
  Receive Date: 20060612
  Receipt Date: 20060606
  Transmission Date: 20061013
  Serious: Yes (Death)
  Sender: FDA-Public Use
  Company Number: 20062846

PATIENT
  Sex: Female

DRUGS (1)
  1. LIORESAL [Suspect]
     Indication: MUSCLE SPASTICITY
     Dosage: DAILY INTRATHECAL
     Route: 037

REACTIONS (4)
  - DYSPNOEA [None]
  - POLYNEUROPATHY [None]
  - PROGRESSIVE MULTIPLE SCLEROSIS [None]
  - RESPIRATORY ARREST [None]
